FAERS Safety Report 8933897 (Version 1)
Quarter: 2012Q4

REPORT INFORMATION
  Report Type: 
  Country: US (occurrence: US)
  Receive Date: 20121129
  Receipt Date: 20121129
  Transmission Date: 20130627
  Serious: No
  Sender: FDA-Public Use
  Company Number: US-PFIZER INC-2012298255

PATIENT
  Age: 63 Year
  Sex: Female
  Weight: 145 kg

DRUGS (6)
  1. CELEBREX [Suspect]
     Indication: ARTHRITIS
     Dosage: 200 mg, 2x/day
     Route: 048
     Dates: end: 20121125
  2. NEURONTIN [Concomitant]
     Dosage: UNK
  3. DETROL LA [Concomitant]
     Dosage: UNK
  4. ENALAPRIL [Concomitant]
     Indication: BLOOD PRESSURE HIGH
     Dosage: 10 mg, 2x/day
  5. HYDROCODONE [Concomitant]
     Indication: PAIN
     Dosage: 500 mg, as needed
  6. XANAX [Concomitant]
     Dosage: UNK

REACTIONS (4)
  - Pain [Unknown]
  - Body height decreased [Unknown]
  - Blood cholesterol increased [Unknown]
  - Drug ineffective [Unknown]
